FAERS Safety Report 11887324 (Version 1)
Quarter: 2016Q1

REPORT INFORMATION
  Report Type: Spontaneous
  Country: FR (occurrence: FR)
  Receive Date: 20160104
  Receipt Date: 20160104
  Transmission Date: 20160526
  Serious: Yes (Other)
  Sender: FDA-Public Use
  Company Number: FR-009507513-1601FRA000018

PATIENT
  Age: 24 Year
  Sex: Male

DRUGS (2)
  1. HYDROCORTISONE. [Suspect]
     Active Substance: HYDROCORTISONE
     Indication: INTERVERTEBRAL DISCITIS
     Dosage: 10 MG, BID
     Route: 048
     Dates: start: 201508, end: 20151029
  2. NOXAFIL [Suspect]
     Active Substance: POSACONAZOLE
     Indication: INTERVERTEBRAL DISCITIS
     Dosage: 100 MG, TID
     Route: 048
     Dates: start: 20150902

REACTIONS (2)
  - Eczema [Recovering/Resolving]
  - Folliculitis [Recovering/Resolving]

NARRATIVE: CASE EVENT DATE: 20151009
